FAERS Safety Report 5036380-6 (Version None)
Quarter: 2006Q2

REPORT INFORMATION
  Report Type: 
  Country: None (occurrence: None)
  Receive Date: 20060601
  Receipt Date: 20060419
  Transmission Date: 20061013
  Serious: No
  Sender: FDA-Public Use
  Company Number: US200604003237

PATIENT
  Sex: Female

DRUGS (8)
  1. CYMBALTA [Suspect]
     Indication: LUMBAR RADICULOPATHY
     Dosage: 30 MG
     Dates: start: 20060324, end: 20060407
  2. PREDNISONE TAB [Concomitant]
  3. LORTAB [Concomitant]
  4. VIVELLE [Concomitant]
  5. ATENOLOL [Concomitant]
  6. KEPPRA [Concomitant]
  7. ZONEGRAN [Concomitant]
  8. SEROTONIN ANTAGONISTS [Concomitant]

REACTIONS (3)
  - BURNING SENSATION [None]
  - NAUSEA [None]
  - RASH PRURITIC [None]
